FAERS Safety Report 8354649-4 (Version None)
Quarter: 2012Q2

REPORT INFORMATION
  Report Type: 
  Country: None (occurrence: None)
  Receive Date: 20120511
  Receipt Date: 20120501
  Transmission Date: 20120825
  Serious: Yes (Other)
  Sender: FDA-Public Use
  Company Number: GB-ABBOTT-12P-167-0913307-00

PATIENT

DRUGS (3)
  1. HUMIRA [Suspect]
     Indication: RHEUMATOID ARTHRITIS
     Dosage: ONCE A FORTNIGHT
     Route: 058
     Dates: start: 20101203
  2. METHOTREXATE [Concomitant]
     Indication: RHEUMATOID ARTHRITIS
     Route: 058
     Dates: start: 20040301
  3. ACETAMINOPHEN [Concomitant]
     Indication: PAIN
     Dosage: 500 MG X2

REACTIONS (1)
  - AGE-RELATED MACULAR DEGENERATION [None]
